FAERS Safety Report 5241735-0 (Version None)
Quarter: 2007Q1

REPORT INFORMATION
  Report Type: 
  Country: None (occurrence: None)
  Receive Date: 20070220
  Receipt Date: 20070207
  Transmission Date: 20070707
  Serious: Yes (Disabling, Other)
  Sender: FDA-Public Use
  Company Number: 2007GB00278

PATIENT
  Sex: Male

DRUGS (4)
  1. SEROQUEL [Suspect]
     Indication: BIPOLAR DISORDER
     Route: 048
  2. STEROID [Concomitant]
  3. METHOTREXATE [Concomitant]
  4. SPASMODAL [Concomitant]
     Indication: IRRITABLE BOWEL SYNDROME

REACTIONS (2)
  - MIGRAINE [None]
  - PHOTOPHOBIA [None]
